FAERS Safety Report 4317781-8 (Version None)
Quarter: 2004Q1

REPORT INFORMATION
  Report Type: 
  Country: None (occurrence: None)
  Receive Date: 20040315
  Receipt Date: 20040306
  Transmission Date: 20041129
  Serious: Yes (Hospitalization)
  Sender: FDA-Public Use
  Company Number: PHRM2004FR01164

PATIENT
  Age: 78 Year
  Sex: Male

DRUGS (1)
  1. TRILEPTAL [Suspect]
     Indication: NEUROPATHIC PAIN
     Dosage: 300 MG, BID
     Route: 048
     Dates: start: 20031212, end: 20040101

REACTIONS (7)
  - BALANCE DISORDER [None]
  - CEREBROVASCULAR ACCIDENT [None]
  - DIPLOPIA [None]
  - HEADACHE [None]
  - NAUSEA [None]
  - VERTEBRAL ARTERY STENOSIS [None]
  - VERTIGO [None]
